FAERS Safety Report 24351890 (Version 1)
Quarter: 2024Q3

REPORT INFORMATION
  Report Type: Report from Study
  Country: US (occurrence: US)
  Receive Date: 20240923
  Receipt Date: 20240923
  Transmission Date: 20241017
  Serious: No
  Sender: ROCHE
  Company Number: US-ROCHE-3575737

PATIENT
  Age: 39 Year
  Sex: Male

DRUGS (8)
  1. HERCEPTIN [Suspect]
     Active Substance: TRASTUZUMAB
     Indication: Breast cancer female
     Route: 065
  2. HERCEPTIN [Suspect]
     Active Substance: TRASTUZUMAB
     Indication: Vomiting
  3. HERCEPTIN [Suspect]
     Active Substance: TRASTUZUMAB
     Indication: Nausea
  4. HERCEPTIN [Suspect]
     Active Substance: TRASTUZUMAB
     Indication: Agranulocytosis
  5. PERJETA [Suspect]
     Active Substance: PERTUZUMAB
     Indication: Breast cancer female
     Route: 065
  6. PERJETA [Suspect]
     Active Substance: PERTUZUMAB
     Indication: Vomiting
  7. PERJETA [Suspect]
     Active Substance: PERTUZUMAB
     Indication: Nausea
  8. PERJETA [Suspect]
     Active Substance: PERTUZUMAB
     Indication: Agranulocytosis

REACTIONS (2)
  - Migraine with aura [Unknown]
  - Headache [Unknown]
